FAERS Safety Report 10402212 (Version 1)
Quarter: 2014Q3

REPORT INFORMATION
  Report Type: Spontaneous
  Country: GB (occurrence: None)
  Receive Date: 20140819
  Receipt Date: 20140819
  Transmission Date: 20150326
  Serious: Yes (Hospitalization)
  Sender: FDA-Public Use
  Company Number: AUR-APL-2014-08652

PATIENT
  Sex: Female

DRUGS (2)
  1. TERBINAFINE [Suspect]
     Active Substance: TERBINAFINE
     Indication: ONYCHOMYCOSIS
     Route: 048
     Dates: start: 201305, end: 201403
  2. CETIRIZINE HYDROCHLORIDE (CETIRIZINE HYDROCHLORIDE) [Concomitant]

REACTIONS (2)
  - Cataract [None]
  - Visual impairment [None]
